FAERS Safety Report 6738614-6 (Version None)
Quarter: 2010Q2

REPORT INFORMATION
  Report Type: 
  Country: None (occurrence: None)
  Receive Date: 20100524
  Receipt Date: 20100513
  Transmission Date: 20101027
  Serious: Yes (Hospitalization)
  Sender: FDA-Public Use
  Company Number: US-BAXTER-2010BH010531

PATIENT
  Age: 58 Year
  Sex: Female

DRUGS (2)
  1. DIANEAL [Suspect]
     Indication: PERITONEAL DIALYSIS COMPLICATION
     Route: 033
     Dates: end: 20100401
  2. DIFLUCAN [Concomitant]

REACTIONS (1)
  - FUNGAL PERITONITIS [None]
